FAERS Safety Report 5935206-3 (Version None)
Quarter: 2008Q4

REPORT INFORMATION
  Report Type: 
  Country: None (occurrence: None)
  Receive Date: 20081028
  Receipt Date: 20081013
  Transmission Date: 20090506
  Serious: Yes (Hospitalization, Other)
  Sender: FDA-Public Use
  Company Number: 2008S1018502

PATIENT
  Age: 48 Year
  Sex: Female
  Weight: 79.3795 kg

DRUGS (6)
  1. HYDROCODONE BITARTRATE + ACETAMINOPHEN [Suspect]
     Indication: BACK PAIN
     Dosage: 7.5 MG; AS NEEDED; ORAL
     Route: 048
     Dates: start: 19980101
  2. ALPRAZOLAM [Suspect]
     Indication: ANXIETY
     Dosage: 3 MG; DAILY; ORAL
     Route: 048
     Dates: start: 19980101
  3. FENTANYL TRANSDERMAL SYSTEM [Suspect]
     Indication: PAIN IN EXTREMITY
     Dosage: 75 UG; EVERY HOUR; TRANSDERMAL
     Route: 062
     Dates: start: 20070701, end: 20071030
  4. SOMA [Concomitant]
  5. SEROQUEL [Concomitant]
  6. EFFEXOR [Concomitant]

REACTIONS (7)
  - AGGRESSION [None]
  - DRUG EFFECT INCREASED [None]
  - FALL [None]
  - MEMORY IMPAIRMENT [None]
  - OVERDOSE [None]
  - PRODUCT QUALITY ISSUE [None]
  - SUICIDE ATTEMPT [None]
